FAERS Safety Report 8019062-8 (Version None)
Quarter: 2012Q1

REPORT INFORMATION
  Report Type: 
  Country: None (occurrence: None)
  Receive Date: 20120103
  Receipt Date: 20111222
  Transmission Date: 20120608
  Serious: Yes (Other)
  Sender: FDA-Public Use
  Company Number: CA-JNJFOC-20111212691

PATIENT
  Sex: Female
  Weight: 68 kg

DRUGS (3)
  1. IMURAN [Concomitant]
     Dosage: DOSE:150 (UNITS UNSPECIFIED)
     Route: 048
  2. PREDNISOLONE [Concomitant]
     Route: 048
  3. REMICADE [Suspect]
     Indication: CROHN'S DISEASE
     Route: 042
     Dates: start: 20100801

REACTIONS (2)
  - RIB FRACTURE [None]
  - FALL [None]
